FAERS Safety Report 24122916 (Version 1)
Quarter: 2024Q3

REPORT INFORMATION
  Report Type: Spontaneous
  Country: FR (occurrence: FR)
  Receive Date: 20240723
  Receipt Date: 20240723
  Transmission Date: 20241016
  Serious: No
  Sender: ALKEM
  Company Number: FR-ALKEM LABORATORIES LIMITED-FR-ALKEM-2022-15449

PATIENT
  Age: 84 Year
  Sex: Female

DRUGS (3)
  1. DRONABINOL [Suspect]
     Active Substance: DRONABINOL
     Indication: Neuralgia
     Dosage: 2.5 MILLIGRAM, BID (SOFT CAPSULE)
     Route: 048
     Dates: start: 20201217
  2. DRONABINOL [Suspect]
     Active Substance: DRONABINOL
     Dosage: 1 DOSAGE FORM, QD, CAPSULE
     Route: 065
  3. DRONABINOL [Suspect]
     Active Substance: DRONABINOL
     Dosage: 2.5 MILLIGRAM, OD (SOFT CAPSULE)
     Route: 065

REACTIONS (4)
  - Sedation [Recovered/Resolved]
  - No adverse event [Unknown]
  - Off label use [Unknown]
  - Prescribed underdose [Unknown]

NARRATIVE: CASE EVENT DATE: 20220101
